FAERS Safety Report 6923327-8 (Version None)
Quarter: 2010Q3

REPORT INFORMATION
  Report Type: 
  Country: None (occurrence: None)
  Receive Date: 20100813
  Receipt Date: 20100809
  Transmission Date: 20110219
  Serious: Yes (Death, Hospitalization, Other)
  Sender: FDA-Public Use
  Company Number: PHEH2007US00637

PATIENT
  Sex: Female
  Weight: 54 kg

DRUGS (14)
  1. ZOMETA [Suspect]
     Indication: BREAST CANCER
     Dosage: 4MG
  2. AREDIA [Suspect]
  3. CHEMOTHERAPEUTICS NOS [Concomitant]
  4. XELODA [Concomitant]
     Indication: BREAST CANCER
     Dosage: 1000 MG, BID
     Route: 048
     Dates: start: 20040801
  5. ANCEF [Concomitant]
     Dosage: UNK
     Route: 042
  6. DEMEROL [Concomitant]
     Dosage: 50 MG
     Route: 030
  7. VISTARIL [Concomitant]
     Dosage: 25 MG
     Route: 030
  8. VISTARIL [Concomitant]
     Dosage: 50 MG
     Route: 030
  9. HALCION [Concomitant]
     Dosage: 0.25 MG, QHS, AS NEEDED
     Route: 048
  10. ACETAMINOPHEN [Concomitant]
     Dosage: UNK
  11. PNEUMOVAX 23 [Concomitant]
     Dosage: 0.5 ML
     Route: 030
  12. HORMONES [Concomitant]
     Dosage: UNK
  13. FEMARA [Concomitant]
     Dosage: 2.5 MG, DAILY
  14. TAMOXIFEN CITRATE [Concomitant]
     Dosage: 20MG, DAILY

REACTIONS (35)
  - ABASIA [None]
  - ALANINE AMINOTRANSFERASE INCREASED [None]
  - ANXIETY [None]
  - ASCITES [None]
  - ASPARTATE AMINOTRANSFERASE INCREASED [None]
  - BLOOD FOLLICLE STIMULATING HORMONE INCREASED [None]
  - BLOOD GLUCOSE INCREASED [None]
  - BONE DEBRIDEMENT [None]
  - BONE DISORDER [None]
  - CARBOHYDRATE ANTIGEN 27.29 INCREASED [None]
  - DECREASED INTEREST [None]
  - DEFORMITY [None]
  - DEHYDRATION [None]
  - DENTAL OPERATION [None]
  - DISEASE PROGRESSION [None]
  - DYSAESTHESIA [None]
  - ELECTROLYTE IMBALANCE [None]
  - EMOTIONAL DISTRESS [None]
  - ERYTHEMA [None]
  - FLUID RETENTION [None]
  - GENERAL PHYSICAL HEALTH DETERIORATION [None]
  - GINGIVAL SWELLING [None]
  - HYPOPHAGIA [None]
  - IMPAIRED HEALING [None]
  - LYMPHADENOPATHY [None]
  - MALIGNANT NEOPLASM PROGRESSION [None]
  - METASTASES TO BONE [None]
  - METASTASES TO SPINE [None]
  - NAIL DISORDER [None]
  - OSTEOMYELITIS [None]
  - OSTEONECROSIS OF JAW [None]
  - PAIN [None]
  - PAIN IN JAW [None]
  - PLEURAL EFFUSION [None]
  - TOOTH EXTRACTION [None]
